FAERS Safety Report 7769917-4 (Version None)
Quarter: 2011Q3

REPORT INFORMATION
  Report Type: 
  Country: None (occurrence: None)
  Receive Date: 20110922
  Receipt Date: 20110919
  Transmission Date: 20111222
  Serious: Yes (Hospitalization)
  Sender: FDA-Public Use
  Company Number: US-GLAXOSMITHKLINE-A0884292A

PATIENT
  Age: 24 Year
  Sex: Male

DRUGS (5)
  1. ADDERALL 5 [Concomitant]
     Dates: start: 20070101, end: 20071007
  2. LAMICTAL [Suspect]
     Indication: DEPRESSION
     Dosage: 100MG PER DAY
     Route: 048
     Dates: start: 20070101, end: 20071001
  3. HYDROXYZINE [Concomitant]
     Dates: start: 20070627
  4. FLONASE [Concomitant]
     Dates: start: 20070326
  5. SILDENAFIL CITRATE [Concomitant]
     Dates: start: 20061017

REACTIONS (6)
  - TRICHIASIS [None]
  - STEVENS-JOHNSON SYNDROME [None]
  - ERYTHEMA MULTIFORME [None]
  - TOXIC EPIDERMAL NECROLYSIS [None]
  - KERATITIS [None]
  - CONJUNCTIVITIS [None]
